FAERS Safety Report 8290795-1 (Version None)
Quarter: 2012Q2

REPORT INFORMATION
  Report Type: 
  Country: None (occurrence: None)
  Receive Date: 20120413
  Receipt Date: 20120413
  Transmission Date: 20120825
  Serious: No
  Sender: FDA-Public Use
  Company Number: None

PATIENT
  Sex: Male
  Weight: 77.5651 kg

DRUGS (1)
  1. VIAGRA [Suspect]
     Dosage: 100 MG

REACTIONS (1)
  - PRODUCT MEASURED POTENCY ISSUE [None]
